FAERS Safety Report 6187779-6 (Version None)
Quarter: 2009Q2

REPORT INFORMATION
  Report Type: 
  Country: None (occurrence: None)
  Receive Date: 20090511
  Receipt Date: 20090511
  Transmission Date: 20091009
  Serious: Yes (Other)
  Sender: FDA-Public Use
  Company Number: None

PATIENT
  Age: 78 Year
  Sex: Female
  Weight: 51.7101 kg

DRUGS (1)
  1. FLAGYL [Suspect]
     Indication: HAEMATOCHEZIA
     Dosage: 250 MG 4 X DAILY
     Dates: start: 20090326, end: 20090402

REACTIONS (8)
  - FATIGUE [None]
  - GENITAL BURNING SENSATION [None]
  - RASH ERYTHEMATOUS [None]
  - RASH GENERALISED [None]
  - RASH PRURITIC [None]
  - RHINORRHOEA [None]
  - SKIN BURNING SENSATION [None]
  - SNEEZING [None]
